FAERS Safety Report 4644484-2 (Version None)
Quarter: 2005Q2

REPORT INFORMATION
  Report Type: 
  Country: None (occurrence: None)
  Receive Date: 20050425
  Receipt Date: 20050425
  Transmission Date: 20051028
  Serious: Yes (Hospitalization)
  Sender: FDA-Public Use
  Company Number: None

PATIENT
  Age: 65 Year
  Sex: Female
  Weight: 133 kg

DRUGS (12)
  1. WARFARIN SODIUM [Suspect]
     Indication: SKIN NECROSIS
     Dosage: PO
     Route: 048
  2. DOCUSATE [Concomitant]
  3. AMIODARONE [Concomitant]
  4. ASPIRIN [Concomitant]
  5. CARBAMAZEPINE [Concomitant]
  6. LEVOTHYROXINE SODIUM [Concomitant]
  7. MIDODRINE HCL [Concomitant]
  8. PANTOPRAZOLE [Concomitant]
  9. NYSTATIN [Concomitant]
  10. VANCOMYCIN [Concomitant]
  11. INSULIN [Concomitant]
  12. ATORVASTATIN CALCIUM [Concomitant]

REACTIONS (7)
  - CONFUSIONAL STATE [None]
  - HYPOTENSION [None]
  - INTERNATIONAL NORMALISED RATIO INCREASED [None]
  - ISCHAEMIA [None]
  - LETHARGY [None]
  - PLATELET COUNT DECREASED [None]
  - SKIN NECROSIS [None]
